FAERS Safety Report 12454397 (Version 3)
Quarter: 2016Q3

REPORT INFORMATION
  Report Type: Spontaneous
  Country: IT (occurrence: IT)
  Receive Date: 20160610
  Receipt Date: 20160916
  Transmission Date: 20161109
  Serious: Yes (Other)
  Sender: FDA-Public Use
  Company Number: IT-ACCORD-041100

PATIENT
  Age: 70 Year
  Sex: Male
  Weight: 73 kg

DRUGS (7)
  1. IRINOTECAN [Suspect]
     Active Substance: IRINOTECAN
     Indication: PANCREATIC CARCINOMA METASTATIC
     Dosage: LAST RECEIVED 04-MAY-2016, DURATION 94 DAYS
     Route: 042
     Dates: start: 20160201
  2. LEVEMIR [Concomitant]
     Active Substance: INSULIN DETEMIR
  3. LEDERFOLIN [Concomitant]
     Active Substance: LEUCOVORIN CALCIUM
     Indication: PANCREATIC CARCINOMA METASTATIC
     Route: 042
     Dates: start: 20160201, end: 20160504
  4. METFORAL [Concomitant]
     Active Substance: METFORMIN HYDROCHLORIDE
  5. APROVEL [Concomitant]
     Active Substance: IRBESARTAN
  6. CARDIOASPIRIN [Concomitant]
     Active Substance: ASPIRIN
  7. FLUOROURACIL. [Suspect]
     Active Substance: FLUOROURACIL
     Indication: PANCREATIC CARCINOMA METASTATIC
     Dosage: LAST RECEIVED ON 04-MAY-2016, DURATION 94 DAYS
     Route: 042
     Dates: start: 20160201

REACTIONS (7)
  - Anaemia [Recovering/Resolving]
  - Abdominal pain [Recovering/Resolving]
  - Stomatitis [Recovering/Resolving]
  - Diarrhoea [Recovering/Resolving]
  - Constipation [Recovering/Resolving]
  - Rash [Recovering/Resolving]
  - Neutropenia [Recovering/Resolving]

NARRATIVE: CASE EVENT DATE: 20160210
